FAERS Safety Report 20501972 (Version 1)
Quarter: 2022Q1

REPORT INFORMATION
  Report Type: Spontaneous
  Country: JP (occurrence: JP)
  Receive Date: 20220222
  Receipt Date: 20220222
  Transmission Date: 20220424
  Serious: Yes (Other)
  Sender: FDA-Public Use
  Company Number: JP-MLMSERVICE-20220208-3361812-1

PATIENT
  Age: 85 Year
  Sex: Female

DRUGS (2)
  1. METHOTREXATE SODIUM [Suspect]
     Active Substance: METHOTREXATE SODIUM
     Indication: Rheumatoid arthritis
     Dosage: FOR OVER A YEAR
  2. TACROLIMUS [Suspect]
     Active Substance: TACROLIMUS
     Indication: Rheumatoid arthritis
     Dosage: FOR OVER A YEAR

REACTIONS (4)
  - Epstein-Barr virus associated lymphoproliferative disorder [Recovering/Resolving]
  - Diffuse large B-cell lymphoma [Recovering/Resolving]
  - Immune reconstitution inflammatory syndrome [Not Recovered/Not Resolved]
  - Cellulitis [Not Recovered/Not Resolved]
